FAERS Safety Report 7313641-9 (Version None)
Quarter: 2011Q1

REPORT INFORMATION
  Report Type: 
  Country: None (occurrence: None)
  Receive Date: 20110225
  Receipt Date: 20110216
  Transmission Date: 20110831
  Serious: Yes (Other)
  Sender: FDA-Public Use
  Company Number: US-AMGEN-USASP2011009314

PATIENT

DRUGS (2)
  1. PRENATAL VITAMINS                  /01549301/ [Concomitant]
  2. ENBREL [Suspect]
     Route: 064
     Dates: start: 20020801

REACTIONS (1)
  - CONGENITAL HYDRONEPHROSIS [None]
